FAERS Safety Report 19490156 (Version 9)
Quarter: 2021Q3

REPORT INFORMATION
  Report Type: Report from Study
  Country: FR (occurrence: FR)
  Receive Date: 20210705
  Receipt Date: 20210928
  Transmission Date: 20211014
  Serious: Yes (Hospitalization)
  Sender: FDA-Public Use
  Company Number: FR-ROCHE-2861131

PATIENT
  Age: 33 Year
  Sex: Male
  Weight: 99 kg

DRUGS (44)
  1. NEURONTIN [Concomitant]
     Active Substance: GABAPENTIN
     Route: 048
     Dates: start: 20180604
  2. BACLOFENE [Concomitant]
     Active Substance: BACLOFEN
     Route: 048
     Dates: start: 2017
  3. VENLAFAXINE [Concomitant]
     Active Substance: VENLAFAXINE HYDROCHLORIDE
     Route: 048
     Dates: start: 20201109, end: 202103
  4. ZYMAD [Concomitant]
     Active Substance: CHOLECALCIFEROL
     Indication: PROPHYLAXIS
     Route: 048
     Dates: start: 20201109
  5. METHYLPREDNISOLONE. [Concomitant]
     Active Substance: METHYLPREDNISOLONE
     Dosage: ONCE BEFORE INFUSION?WEEK 48
     Route: 042
     Dates: start: 20190702, end: 20190702
  6. PFIZER?BIONTECH COVID?19 VACCINE [Concomitant]
     Active Substance: TOZINAMERAN
     Route: 030
     Dates: start: 20210804, end: 20210804
  7. METHYLPREDNISOLONE. [Concomitant]
     Active Substance: METHYLPREDNISOLONE
     Dosage: ONCE BEFORE INFUSION?WEEK 2
     Route: 042
     Dates: start: 20180802, end: 20180802
  8. METHYLPREDNISOLONE. [Concomitant]
     Active Substance: METHYLPREDNISOLONE
     Dosage: ONCE BEFORE INFUSION?WEEK 120
     Route: 042
     Dates: start: 20201109, end: 20201109
  9. METHYLPREDNISOLONE. [Concomitant]
     Active Substance: METHYLPREDNISOLONE
     Dosage: ONCE BEFORE INFUSION?WEEK 144
     Route: 042
     Dates: start: 20210413, end: 20210413
  10. POLARAMINE [Concomitant]
     Active Substance: DEXCHLORPHENIRAMINE MALEATE
     Dosage: WEEK 96
     Route: 042
     Dates: start: 20200528, end: 20200528
  11. POLARAMINE [Concomitant]
     Active Substance: DEXCHLORPHENIRAMINE MALEATE
     Dosage: WEEK 120
     Route: 042
     Dates: start: 20201109, end: 20201109
  12. PERFALGAN [Concomitant]
     Active Substance: ACETAMINOPHEN
     Dosage: ONCE BEFORE INFUSION WEEK 24
     Route: 042
     Dates: start: 20190110, end: 20190110
  13. PERFALGAN [Concomitant]
     Active Substance: ACETAMINOPHEN
     Dosage: ONCE BEFORE INFUSION WEEK 96
     Route: 042
     Dates: start: 20200528, end: 20200528
  14. PFIZER?BIONTECH COVID?19 VACCINE [Concomitant]
     Active Substance: TOZINAMERAN
     Indication: PROPHYLAXIS
     Route: 030
     Dates: start: 20210610, end: 20210610
  15. SEROPLEX [Concomitant]
     Active Substance: ESCITALOPRAM OXALATE
     Indication: DEPRESSION
     Route: 048
     Dates: end: 20190105
  16. POLARAMIN [Concomitant]
     Active Substance: DEXCHLORPHENIRAMINE MALEATE
     Dosage: 1AMPULE
     Route: 042
     Dates: start: 20190110, end: 20190110
  17. LAMOTRIGINE. [Concomitant]
     Active Substance: LAMOTRIGINE
     Route: 048
     Dates: start: 20190702
  18. METHYLPREDNISOLONE. [Concomitant]
     Active Substance: METHYLPREDNISOLONE
     Dosage: ONCE BEFORE INFUSION?BASELINE WEEK 0
     Route: 042
     Dates: start: 20180719, end: 20180719
  19. POLARAMINE [Concomitant]
     Active Substance: DEXCHLORPHENIRAMINE MALEATE
     Dosage: WEEK 2
     Route: 042
     Dates: start: 20180802, end: 20180802
  20. PERFALGAN [Concomitant]
     Active Substance: ACETAMINOPHEN
     Dosage: ONCE BEFORE INFUSION WEEK 72
     Route: 042
     Dates: start: 20191223, end: 20191223
  21. CLOMIPRAMINE [Concomitant]
     Active Substance: CLOMIPRAMINE
     Route: 048
     Dates: start: 20190624
  22. ACUPAN [Concomitant]
     Active Substance: NEFOPAM HYDROCHLORIDE
     Dosage: 1 AMPULE
     Route: 060
     Dates: start: 20190110, end: 20190110
  23. METHYLPREDNISOLONE. [Concomitant]
     Active Substance: METHYLPREDNISOLONE
     Dosage: ONCE BEFORE INFUSION?WEEK 24
     Route: 042
     Dates: start: 20190110, end: 20190110
  24. POLARAMINE [Concomitant]
     Active Substance: DEXCHLORPHENIRAMINE MALEATE
     Indication: PREMEDICATION
     Dosage: WEEK 0
     Route: 042
     Dates: start: 20180719, end: 20180719
  25. POLARAMINE [Concomitant]
     Active Substance: DEXCHLORPHENIRAMINE MALEATE
     Dosage: WEEK 48
     Route: 042
     Dates: start: 20190702, end: 20190702
  26. PERFALGAN [Concomitant]
     Active Substance: ACETAMINOPHEN
     Dosage: ONCE BEFORE INFUSION WEEK 2
     Route: 042
     Dates: start: 20180802, end: 20180802
  27. PFIZER?BIONTECH COVID?19 VACCINE [Concomitant]
     Active Substance: TOZINAMERAN
     Route: 030
     Dates: start: 20210707, end: 20210707
  28. MECIR [Concomitant]
     Active Substance: TAMSULOSIN HYDROCHLORIDE
     Dosage: 1 TABLET
     Route: 048
     Dates: start: 2017
  29. GABAPENTINE [Concomitant]
     Active Substance: GABAPENTIN
     Route: 048
     Dates: start: 20190702
  30. METHYLPREDNISOLONE. [Concomitant]
     Active Substance: METHYLPREDNISOLONE
     Dosage: ONCE BEFORE INFUSION?WEEK 72
     Route: 042
     Dates: start: 20191223, end: 20191223
  31. PERFALGAN [Concomitant]
     Active Substance: ACETAMINOPHEN
     Dosage: ONCE BEFORE INFUSION WEEK 48
     Route: 042
     Dates: start: 20190702, end: 20190702
  32. PERFALGAN [Concomitant]
     Active Substance: ACETAMINOPHEN
     Dosage: ONCE BEFORE INFUSION?WEEK 120
     Route: 042
     Dates: start: 20201109, end: 20201109
  33. PERFALGAN [Concomitant]
     Active Substance: ACETAMINOPHEN
     Dosage: ONCE BEFORE INFUSION?WEEK 144
     Route: 042
     Dates: start: 20210413, end: 20210413
  34. VESICARE [Concomitant]
     Active Substance: SOLIFENACIN SUCCINATE
     Route: 048
     Dates: start: 20190702
  35. BOTULINUM TOXIN [Concomitant]
     Active Substance: BOTULINUM TOXIN NOS
     Dosage: ONCE
     Route: 030
     Dates: start: 202006, end: 202006
  36. TRAMADOL. [Concomitant]
     Active Substance: TRAMADOL
     Route: 048
     Dates: start: 20210324, end: 20210407
  37. POLARAMINE [Concomitant]
     Active Substance: DEXCHLORPHENIRAMINE MALEATE
     Dosage: WEEK 72
     Route: 042
     Dates: start: 20191223, end: 20191223
  38. POLARAMINE [Concomitant]
     Active Substance: DEXCHLORPHENIRAMINE MALEATE
     Dosage: WEEK 144
     Route: 042
     Dates: start: 20210413, end: 20210413
  39. PERFALGAN [Concomitant]
     Active Substance: ACETAMINOPHEN
     Indication: PREMEDICATION
     Dosage: ONCE BEFORE INFUSION WEEK 0
     Route: 042
     Dates: start: 20180719, end: 20180719
  40. OCRELIZUMAB. [Suspect]
     Active Substance: OCRELIZUMAB
     Indication: PROGRESSIVE MULTIPLE SCLEROSIS
     Dosage: BASELINE WEEK 0?DATE OF MOST RECENT DOSE (600 MG) OF OCRELIZUMAB PRIOR TO THIS AE AND SAE ONSET:13/A
     Route: 042
     Dates: start: 20180719
  41. KETAMINE [Concomitant]
     Active Substance: KETAMINE
     Route: 042
     Dates: start: 20180828, end: 20190220
  42. GABAPENTINE [Concomitant]
     Active Substance: GABAPENTIN
     Route: 048
     Dates: start: 20201109
  43. METHYLPREDNISOLONE. [Concomitant]
     Active Substance: METHYLPREDNISOLONE
     Dosage: ONCE BEFORE INFUSION?WEEK 96
     Route: 042
     Dates: start: 20200528, end: 20200528
  44. POLARAMINE [Concomitant]
     Active Substance: DEXCHLORPHENIRAMINE MALEATE
     Dosage: WEEK 24
     Route: 042
     Dates: start: 20190110, end: 20190110

REACTIONS (1)
  - Urosepsis [Recovered/Resolved]

NARRATIVE: CASE EVENT DATE: 20210623
